FAERS Safety Report 6123489-9 (Version None)
Quarter: 2009Q1

REPORT INFORMATION
  Report Type: 
  Country: None (occurrence: None)
  Receive Date: 20090318
  Receipt Date: 20090306
  Transmission Date: 20090719
  Serious: Yes (Life-Threatening, Hospitalization)
  Sender: FDA-Public Use
  Company Number: DE-B.I. PHARMACEUTICALS,INC./RIDGEFIELD-2008-DE-05534DE

PATIENT
  Sex: Male
  Weight: 66 kg

DRUGS (1)
  1. SPIRIVA [Suspect]
     Indication: CHRONIC OBSTRUCTIVE PULMONARY DISEASE
     Dosage: 2PUF
     Route: 055
     Dates: start: 20080730, end: 20080908

REACTIONS (6)
  - AZOTAEMIA [None]
  - BENIGN PROSTATIC HYPERPLASIA [None]
  - CIRCULATORY COLLAPSE [None]
  - CONSTIPATION [None]
  - URINARY RETENTION [None]
  - URINARY TRACT INFECTION [None]
